FAERS Safety Report 12929542 (Version 1)
Quarter: 2016Q4

REPORT INFORMATION
  Report Type: Spontaneous
  Country: US (occurrence: US)
  Receive Date: 20161110
  Receipt Date: 20161110
  Transmission Date: 20170207
  Serious: Yes (Congenital Anomaly)
  Sender: FDA-Public Use
  Company Number: US-GLAXOSMITHKLINE-US2016GSK166169

PATIENT

DRUGS (7)
  1. FOLATE [Suspect]
     Active Substance: FOLATE SODIUM
  2. BUTALBITAL [Suspect]
     Active Substance: BUTALBITAL
     Indication: MIGRAINE
  3. PROMETHAZINE [Suspect]
     Active Substance: PROMETHAZINE\PROMETHAZINE HYDROCHLORIDE
     Indication: MIGRAINE
  4. ACETAMINOPHEN. [Suspect]
     Active Substance: ACETAMINOPHEN
     Indication: MIGRAINE
  5. LAMOTRIGINE. [Suspect]
     Active Substance: LAMOTRIGINE
     Indication: BIPOLAR DISORDER
  6. CAFFEINE. [Suspect]
     Active Substance: CAFFEINE
     Indication: MIGRAINE
  7. QUETIAPINE. [Suspect]
     Active Substance: QUETIAPINE
     Indication: BIPOLAR DISORDER

REACTIONS (4)
  - Live birth [Unknown]
  - Exposure during breast feeding [Unknown]
  - Foetal exposure during pregnancy [Unknown]
  - Cardiac murmur [Recovered/Resolved]
